FAERS Safety Report 9360886 (Version 1)
Quarter: 2013Q2

REPORT INFORMATION
  Report Type: Spontaneous
  Country: US (occurrence: US)
  Receive Date: 20130621
  Receipt Date: 20130621
  Transmission Date: 20140414
  Serious: Yes (Other)
  Sender: FDA-Public Use
  Company Number: US-PFIZER INC-2013183722

PATIENT
  Sex: Male

DRUGS (3)
  1. NEURONTIN [Suspect]
     Dosage: UNK
  2. DEPAKOTE [Suspect]
     Dosage: UNK
  3. REGLAN [Suspect]
     Dosage: UNK

REACTIONS (5)
  - Suicidal ideation [Recovering/Resolving]
  - Impaired work ability [Not Recovered/Not Resolved]
  - Emotional disorder [Unknown]
  - Depression [Not Recovered/Not Resolved]
  - Crying [Unknown]
